FAERS Safety Report 9336923 (Version 1)
Quarter: 2013Q2

REPORT INFORMATION
  Report Type: Other
  Country: JP (occurrence: JP)
  Receive Date: 20130607
  Receipt Date: 20130607
  Transmission Date: 20140414
  Serious: Yes (Other)
  Sender: FDA-Public Use
  Company Number: JP-BRISTOL-MYERS SQUIBB COMPANY-18946186

PATIENT
  Age: 8 Year
  Sex: Male

DRUGS (1)
  1. IFOSFAMIDE [Suspect]
     Indication: RHABDOID TUMOUR OF THE KIDNEY
     Dosage: 66.7 MG/KG (DAYS 1,2,3) IN CYCLES 1,2AND5 AND 2000MG/M2 (DAYS1,2,3) IN CYCLES 3AND4

REACTIONS (3)
  - Renal tubular disorder [Unknown]
  - Electrolyte imbalance [Unknown]
  - Malignant neoplasm progression [Unknown]
